FAERS Safety Report 23060157 (Version 1)
Quarter: 2023Q4

REPORT INFORMATION
  Report Type: Spontaneous
  Country: GB (occurrence: None)
  Receive Date: 20231012
  Receipt Date: 20231012
  Transmission Date: 20240110
  Serious: Yes (Other)
  Sender: FDA-Public Use
  Company Number: 2023A226109

PATIENT
  Age: 73 Year
  Sex: Female
  Weight: 112 kg

DRUGS (17)
  1. DAPAGLIFLOZIN [Suspect]
     Active Substance: DAPAGLIFLOZIN
     Dosage: 10
     Route: 048
     Dates: start: 20230821
  2. ALOGLIPTIN [Concomitant]
     Active Substance: ALOGLIPTIN
     Dates: start: 20230614
  3. ASPIRIN [Concomitant]
     Active Substance: ASPIRIN
     Dates: start: 20230614
  4. ATORVASTATIN [Concomitant]
     Active Substance: ATORVASTATIN
     Dates: start: 20230614
  5. CETRABEN [Concomitant]
     Dosage: APPLY
     Dates: start: 20230614, end: 20230920
  6. COCODAMOL [Concomitant]
     Active Substance: ACETAMINOPHEN\CODEINE PHOSPHATE
     Dates: start: 20230614
  7. DOXAZOSIN [Concomitant]
     Active Substance: DOXAZOSIN MESYLATE
     Dates: start: 20230614
  8. EMPAGLIFLOZIN [Concomitant]
     Active Substance: EMPAGLIFLOZIN
     Dates: start: 20230929
  9. FERROUS SULFATE [Concomitant]
     Active Substance: FERROUS SULFATE
     Dates: start: 20230614, end: 20230920
  10. FUROSEMIDE [Concomitant]
     Active Substance: FUROSEMIDE
     Dosage: TAKE AN ADDITIAONL 20MG FOR 10 DAYS THEN REVIEW...
     Dates: start: 20230614
  11. HYDROXOCOBALAMIN [Concomitant]
     Active Substance: HYDROXOCOBALAMIN
     Dosage: USE AS DIRECTED UNKNOWN
     Dates: start: 20230918
  12. HYALURONATE SODIUM [Concomitant]
     Active Substance: HYALURONATE SODIUM
     Dosage: APPLY TO BOTH EYES FOUR TIMES A DAY
     Dates: start: 20230918
  13. OMEPRAZOLE [Concomitant]
     Active Substance: OMEPRAZOLE
     Dates: start: 20230614
  14. QUININE [Concomitant]
     Active Substance: QUININE
     Dates: start: 20230614
  15. RYBELSUS [Concomitant]
     Active Substance: SEMAGLUTIDE
     Dates: start: 20230628, end: 20230920
  16. METFORMIN HYDROCHLORIDE [Concomitant]
     Active Substance: METFORMIN HYDROCHLORIDE
     Dates: start: 20230614
  17. VENTOLIN [Concomitant]
     Active Substance: ALBUTEROL SULFATE
     Dates: start: 20230920

REACTIONS (2)
  - Confusional state [Recovered/Resolved]
  - Dyspnoea [Unknown]
